FAERS Safety Report 16750108 (Version 3)
Quarter: 2020Q3

REPORT INFORMATION
  Report Type: Spontaneous
  Country: FR (occurrence: FR)
  Receive Date: 20190828
  Receipt Date: 20200827
  Transmission Date: 20201102
  Serious: Yes (Hospitalization)
  Sender: FDA-Public Use
  Company Number: PHHY2019FR199171

PATIENT
  Age: 54 Year
  Sex: Male
  Weight: 87.5 kg

DRUGS (36)
  1. PROPOFOL. [Suspect]
     Active Substance: PROPOFOL
     Indication: PAIN
     Dosage: 1088 MG, QD
     Route: 065
     Dates: start: 20190515, end: 20190515
  2. INNOHEP [Suspect]
     Active Substance: TINZAPARIN SODIUM
     Dosage: 17000 IU, QD
     Route: 058
     Dates: start: 20190520
  3. OCTREOTIDE. [Suspect]
     Active Substance: OCTREOTIDE
     Indication: GASTROINTESTINAL HAEMORRHAGE
     Dosage: 600 UG, QD
     Route: 042
     Dates: start: 20190605, end: 20190607
  4. VANCOMYCINE SANDOZ [Suspect]
     Active Substance: VANCOMYCIN
     Indication: SEPSIS
     Dosage: 3080 MG, QD
     Route: 065
     Dates: start: 20190605, end: 20190628
  5. MAGNESIUM [Suspect]
     Active Substance: MAGNESIUM
     Indication: MAGNESIUM DEFICIENCY
     Dosage: 1 OT, QD
     Route: 065
  6. MAGNESIUM [Suspect]
     Active Substance: MAGNESIUM
     Dosage: 2 DF, QD (2?0?0)
     Route: 048
     Dates: start: 20190618
  7. OROZAMUDOL [Suspect]
     Active Substance: TRAMADOL
     Indication: PAIN
     Dosage: 50 MG
     Route: 048
     Dates: start: 20190520, end: 20190602
  8. INNOHEP [Suspect]
     Active Substance: TINZAPARIN SODIUM
     Dosage: 17000 IU
     Route: 058
     Dates: start: 20190505, end: 20190520
  9. DOLIPRANE [Concomitant]
     Active Substance: ACETAMINOPHEN
     Indication: PAIN
     Dosage: 1 G
     Route: 048
  10. VANCOMYCINE SANDOZ [Suspect]
     Active Substance: VANCOMYCIN
     Indication: PAIN
     Dosage: 3080 MG, QD
     Route: 042
     Dates: start: 20190628
  11. POLARAMINE [Suspect]
     Active Substance: DEXCHLORPHENIRAMINE MALEATE
     Indication: ALLERGY PROPHYLAXIS
     Dosage: 5 MG, QD
     Route: 042
     Dates: start: 20190606
  12. METHYLPREDNISOLONE MYLAN [Suspect]
     Active Substance: METHYLPREDNISOLONE
     Dosage: 60 UNK
     Route: 042
     Dates: start: 20190606, end: 20190606
  13. PIPERACILLIN/TAZOBACTAM SANDOZ [Suspect]
     Active Substance: PIPERACILLIN SODIUM\TAZOBACTAM SODIUM
     Dosage: 12 G, QD
     Route: 042
     Dates: start: 20190614, end: 20190624
  14. LOVENOX [Suspect]
     Active Substance: ENOXAPARIN SODIUM
     Indication: THROMBOSIS PROPHYLAXIS
     Dosage: 4000 IU, QD
     Route: 065
     Dates: start: 20190614
  15. ACTISKENAN [Suspect]
     Active Substance: MORPHINE SULFATE
     Indication: PAIN
     Dosage: 15 MG, QD
     Route: 048
     Dates: start: 20190629, end: 20190705
  16. ACTISKENAN [Suspect]
     Active Substance: MORPHINE SULFATE
     Dosage: 15 MG, QD
     Route: 048
     Dates: start: 20190705
  17. REMIFENTANIL [Suspect]
     Active Substance: REMIFENTANIL
     Indication: ANAESTHESIA
     Dosage: 796 UG, QD
     Route: 065
     Dates: start: 20190515, end: 20190515
  18. VITAMIN K1 [Suspect]
     Active Substance: PHYTONADIONE
     Indication: PROTHROMBIN TIME RATIO DECREASED
     Dosage: 20 MG, QD
     Route: 042
     Dates: start: 20190604
  19. METHYLPREDNISOLONE MYLAN [Suspect]
     Active Substance: METHYLPREDNISOLONE
     Indication: ALLERGY PROPHYLAXIS
     Dosage: 60 MG, QD
     Route: 042
     Dates: start: 20190606
  20. PANTOPRAZOLE [Suspect]
     Active Substance: PANTOPRAZOLE
     Indication: PROPHYLAXIS AGAINST GASTROINTESTINAL ULCER
     Dosage: 20 MG, UNK
     Route: 048
     Dates: start: 20190505
  21. MAGNESIUM [Suspect]
     Active Substance: MAGNESIUM
     Dosage: 2 DF, QD (2?0?0)
     Route: 048
     Dates: start: 20190705
  22. DAPTOMYCIN. [Suspect]
     Active Substance: DAPTOMYCIN
     Indication: SEPTIC SHOCK
     Dosage: 850 MG, QD
     Route: 065
     Dates: start: 20190701, end: 20190704
  23. OCTREOTIDE. [Suspect]
     Active Substance: OCTREOTIDE
     Dosage: 600 UG, QD
     Route: 042
     Dates: start: 20190607
  24. KONAKION MM [Suspect]
     Active Substance: PHYTONADIONE
     Indication: PROTHROMBIN TIME RATIO DECREASED
     Dosage: 20 MG, QD
     Route: 042
     Dates: start: 20190604, end: 20190609
  25. TOPALGIC LP [Suspect]
     Active Substance: TRAMADOL HYDROCHLORIDE
     Indication: PAIN
     Dosage: 200 MG, QD
     Route: 048
     Dates: start: 20190515, end: 20190515
  26. PIPERACILLIN/TAZOBACTAM SANDOZ [Suspect]
     Active Substance: PIPERACILLIN SODIUM\TAZOBACTAM SODIUM
     Indication: SEPSIS
     Dosage: 12 G, QD
     Route: 042
     Dates: start: 20190406, end: 20190607
  27. CETIRIZINE [Suspect]
     Active Substance: CETIRIZINE HYDROCHLORIDE
     Indication: ALLERGY PROPHYLAXIS
     Dosage: 10 MG, QD
     Route: 048
     Dates: start: 20190606
  28. TINZAPARIN SODIUM [Suspect]
     Active Substance: TINZAPARIN SODIUM
     Indication: THROMBOSIS
     Dosage: 17000 IU, QD
     Route: 058
     Dates: start: 20190505, end: 20190520
  29. VITAMIN K1 [Suspect]
     Active Substance: PHYTONADIONE
     Dosage: 20 MG, QD
     Route: 042
     Dates: start: 20190609
  30. KARDEGIC [Concomitant]
     Active Substance: ASPIRIN DL-LYSINE
     Indication: ISCHAEMIC CARDIOMYOPATHY
     Dosage: 75 MG, QD
     Route: 048
  31. OCTREOTIDE. [Suspect]
     Active Substance: OCTREOTIDE
  32. AMIKACIN. [Suspect]
     Active Substance: AMIKACIN
     Indication: SEPSIS
     Dosage: 1500 MG, QD
     Route: 065
     Dates: start: 20190604, end: 20190604
  33. CEFTRIAXONE. [Suspect]
     Active Substance: CEFTRIAXONE
     Indication: SEPSIS
     Dosage: 1 G, QD
     Route: 065
     Dates: start: 20190607, end: 20190613
  34. COLCHICINE OPOCALCIUM [Suspect]
     Active Substance: COLCHICINE
     Indication: GOUT
     Dosage: 2 MG, QD
     Route: 048
     Dates: start: 20190615, end: 20190617
  35. NEFOPAM [Suspect]
     Active Substance: NEFOPAM
     Indication: PAIN
     Dosage: 20 MG, QD
     Route: 065
     Dates: start: 20190515
  36. INNOHEP [Suspect]
     Active Substance: TINZAPARIN SODIUM
     Indication: THROMBOSIS
     Dosage: 17000 IU, QD
     Route: 058
     Dates: start: 20190505

REACTIONS (1)
  - Drug reaction with eosinophilia and systemic symptoms [Not Recovered/Not Resolved]

NARRATIVE: CASE EVENT DATE: 20190701
